FAERS Safety Report 14362102 (Version 1)
Quarter: 2018Q1

REPORT INFORMATION
  Report Type: Spontaneous
  Country: CZ (occurrence: CZ)
  Receive Date: 20180108
  Receipt Date: 20180108
  Transmission Date: 20180509
  Serious: Yes (Life-Threatening, Hospitalization, Other)
  Sender: FDA-Public Use
  Company Number: CZ-ACCORD-062567

PATIENT
  Age: 51 Year
  Sex: Female

DRUGS (14)
  1. MIDAZOLAM [Concomitant]
     Active Substance: MIDAZOLAM HYDROCHLORIDE
  2. BROMAZEPAM [Concomitant]
     Active Substance: BROMAZEPAM
  3. CHLORPROTHIXENE [Concomitant]
     Active Substance: CHLORPROTHIXENE
  4. TRAZODONE [Interacting]
     Active Substance: TRAZODONE HYDROCHLORIDE
     Indication: PRODUCT USED FOR UNKNOWN INDICATION
  5. PAROXETINE. [Interacting]
     Active Substance: PAROXETINE
     Indication: PRODUCT USED FOR UNKNOWN INDICATION
  6. CODEINE [Interacting]
     Active Substance: CODEINE
     Indication: PRODUCT USED FOR UNKNOWN INDICATION
  7. IVABRADINE/IVABRADINE HYDROCHLORIDE [Concomitant]
     Indication: SINUS TACHYCARDIA
  8. TRAMADOL/TRAMADOL HYDROCHLORIDE [Suspect]
     Active Substance: TRAMADOL HYDROCHLORIDE
     Indication: ANALGESIC THERAPY
  9. LEVOFLOXACIN/LEVOFLOXACIN MESYLATE [Interacting]
     Active Substance: LEVOFLOXACIN
     Indication: ANTIBIOTIC THERAPY
  10. MELOXICAM. [Concomitant]
     Active Substance: MELOXICAM
     Indication: ANALGESIC THERAPY
  11. METOCLOPRAMIDE. [Interacting]
     Active Substance: METOCLOPRAMIDE
     Indication: PRODUCT USED FOR UNKNOWN INDICATION
  12. BUDESONIDE/FORMOTEROL FUMARATE [Concomitant]
     Indication: ASTHMA
     Dosage: BUDESONIDE : 160 UG?FORMOTEROL: 4.5 UG
  13. SUFENTANIL [Interacting]
     Active Substance: SUFENTANIL
     Indication: SEDATION
  14. INDOMETACIN [Concomitant]
     Active Substance: INDOMETHACIN
     Indication: ANALGESIC THERAPY

REACTIONS (15)
  - Sinus tachycardia [None]
  - Myoglobinaemia [None]
  - Cardiac arrest [None]
  - Aspergillus infection [None]
  - Depressed level of consciousness [Unknown]
  - Pulseless electrical activity [None]
  - Serotonin syndrome [Unknown]
  - Drug interaction [Unknown]
  - Brain oedema [None]
  - Oliguria [None]
  - Pneumonia [None]
  - Candida infection [None]
  - Epilepsy [None]
  - Metabolic acidosis [None]
  - Electrocardiogram ST segment depression [None]
